FAERS Safety Report 16559956 (Version 1)
Quarter: 2019Q3

REPORT INFORMATION
  Report Type: Report from Study
  Country: US (occurrence: US)
  Receive Date: 20190711
  Receipt Date: 20190711
  Transmission Date: 20191004
  Serious: Yes (Hospitalization)
  Sender: FDA-Public Use
  Company Number: US-TEVA-2019-US-1074013

PATIENT

DRUGS (5)
  1. CYTARABINE. [Suspect]
     Active Substance: CYTARABINE
     Indication: ACUTE PROMYELOCYTIC LEUKAEMIA
     Dosage: ADMINISTERED WITHIN 30 DAYS PRIOR TO INITIATING AMINOCAPROIC ACID
     Route: 065
  2. ALL TRANS RETINOIC ACID [Suspect]
     Active Substance: TRETINOIN
     Indication: ACUTE PROMYELOCYTIC LEUKAEMIA
     Dosage: ADMINISTERED WITHIN 30 DAYS PRIOR TO INITIATING AMINOCAPROIC ACID
     Route: 065
  3. VITAMIN K [Suspect]
     Active Substance: PHYTONADIONE
     Indication: ADJUVANT THERAPY
     Dosage: ADMINISTERED ALONGSIDE AMINOCAPROIC ACID
     Route: 065
  4. DAUNORUBICIN [Suspect]
     Active Substance: DAUNORUBICIN
     Indication: ACUTE PROMYELOCYTIC LEUKAEMIA
     Dosage: ADMINISTERED WITHIN 30 DAYS PRIOR TO INITIATING AMINOCAPROIC ACID
     Route: 065
  5. AMINOCAPROIC ACID. [Suspect]
     Active Substance: AMINOCAPROIC ACID
     Indication: PROPHYLAXIS
     Route: 042

REACTIONS (2)
  - Deep vein thrombosis [Unknown]
  - Off label use [Unknown]
